FAERS Safety Report 24390700 (Version 1)
Quarter: 2024Q4

REPORT INFORMATION
  Report Type: Spontaneous
  Country: US (occurrence: US)
  Receive Date: 20241003
  Receipt Date: 20241003
  Transmission Date: 20250115
  Serious: Yes (Hospitalization)
  Sender: STRIDES
  Company Number: US-STRIDES ARCOLAB LIMITED-2024SP004901

PATIENT
  Age: 4 Decade
  Sex: Male

DRUGS (1)
  1. PREDNISOLONE [Suspect]
     Active Substance: PREDNISOLONE
     Indication: Asthma
     Dosage: UNK (CHRONIC USE)
     Route: 065

REACTIONS (3)
  - Sepsis [Unknown]
  - Candida infection [Recovered/Resolved]
  - Systemic candida [Recovered/Resolved]
